FAERS Safety Report 8150167-7 (Version None)
Quarter: 2012Q1

REPORT INFORMATION
  Report Type: 
  Country: None (occurrence: None)
  Receive Date: 20120220
  Receipt Date: 20120207
  Transmission Date: 20120608
  Serious: No
  Sender: FDA-Public Use
  Company Number: US-B.I. PHARMACEUTICALS,INC./RIDGEFIELD-2011-BP-00545BP

PATIENT
  Sex: Female

DRUGS (8)
  1. PRADAXA [Suspect]
     Indication: ATRIAL FIBRILLATION
     Dosage: 300 MG
     Dates: start: 20101201, end: 20110101
  2. LANTUS [Concomitant]
     Indication: DIABETES MELLITUS
  3. SIMVASTATIN [Concomitant]
     Indication: DIABETES MELLITUS
  4. BYETTA [Concomitant]
     Indication: DIABETES MELLITUS
  5. ALLEGRA [Concomitant]
     Indication: SEASONAL ALLERGY
  6. BUSPIRONE HCL [Concomitant]
  7. METFORMIN HCL [Concomitant]
     Indication: DIABETES MELLITUS
  8. ACTOS [Concomitant]
     Indication: DIABETES MELLITUS

REACTIONS (4)
  - URTICARIA [None]
  - HYPERSENSITIVITY [None]
  - BLISTER [None]
  - SCAR [None]
